FAERS Safety Report 9790797 (Version 2)
Quarter: 2014Q2

REPORT INFORMATION
  Report Type: Spontaneous
  Country: FR (occurrence: FR)
  Receive Date: 20131231
  Receipt Date: 20140521
  Transmission Date: 20141212
  Serious: Yes (Hospitalization)
  Sender: FDA-Public Use
  Company Number: PHHY2013FR153286

PATIENT
  Age: 46 Year
  Sex: Female

DRUGS (7)
  1. TASIGNA [Suspect]
     Indication: ACUTE LYMPHOCYTIC LEUKAEMIA
     Route: 048
     Dates: start: 20131128
  2. TASIGNA [Suspect]
     Indication: OFF LABEL USE
  3. METHOTREXATE [Suspect]
     Indication: ACUTE LYMPHOCYTIC LEUKAEMIA
     Dates: start: 20131128
  4. ARACYTINE [Suspect]
     Indication: ACUTE LYMPHOCYTIC LEUKAEMIA
     Dates: start: 20131128
  5. ENDOXAN [Concomitant]
  6. VP-16 [Concomitant]
  7. ASPARAGINASE [Concomitant]

REACTIONS (6)
  - Encephalitis [Recovered/Resolved]
  - Gait disturbance [Recovering/Resolving]
  - Renal failure [Recovered/Resolved]
  - Pain in extremity [Recovered/Resolved]
  - Pyrexia [Recovered/Resolved]
  - Neuropathy peripheral [Recovering/Resolving]
